FAERS Safety Report 8763016 (Version 2)
Quarter: 2012Q4

REPORT INFORMATION
  Report Type: Spontaneous
  Country: US (occurrence: None)
  Receive Date: 20120824
  Receipt Date: 20120911
  Transmission Date: 20130627
  Serious: Yes (Death)
  Sender: FDA-Public Use
  Company Number: UTC-022173

PATIENT
  Age: 49 Year
  Sex: Male
  Weight: 81.8 kg

DRUGS (3)
  1. REMODULIN [Suspect]
     Indication: CHRONIC PULMONARY HEART DISEASE
     Dosage: (0.045 ug/kg, 1 in 1 min)
     Route: 041
     Dates: start: 20120509, end: 2012
  2. ADCIRCA [Concomitant]
  3. COUMADIN [Concomitant]

REACTIONS (2)
  - Death [None]
  - Pulmonary hypertension [None]
